FAERS Safety Report 7273903-0 (Version None)
Quarter: 2011Q1

REPORT INFORMATION
  Report Type: 
  Country: None (occurrence: None)
  Receive Date: 20110203
  Receipt Date: 20110127
  Transmission Date: 20110831
  Serious: Yes (Other)
  Sender: FDA-Public Use
  Company Number: IN-ABBOTT-11P-078-0701787-00

PATIENT

DRUGS (1)
  1. VALPROATE SODIUM [Suspect]
     Indication: BENIGN ROLANDIC EPILEPSY

REACTIONS (3)
  - NERVOUS SYSTEM DISORDER [None]
  - ABNORMAL BEHAVIOUR [None]
  - COGNITIVE DISORDER [None]
